FAERS Safety Report 5999827-4 (Version None)
Quarter: 2008Q4

REPORT INFORMATION
  Report Type: 
  Country: None (occurrence: None)
  Receive Date: 20081215
  Receipt Date: 20081209
  Transmission Date: 20090506
  Serious: Yes (Other)
  Sender: FDA-Public Use
  Company Number: BR-AVENTIS-200821308GDDC

PATIENT
  Age: 31 Year
  Sex: Female
  Weight: 63 kg

DRUGS (2)
  1. LANTUS [Suspect]
     Route: 058
     Dates: start: 20081118, end: 20081202
  2. METFORMIN HCL [Concomitant]
     Dates: start: 20061001

REACTIONS (5)
  - DERMATITIS ALLERGIC [None]
  - ERYTHEMA MULTIFORME [None]
  - INJECTION SITE HYPERSENSITIVITY [None]
  - RASH [None]
  - URTICARIA [None]
